FAERS Safety Report 20620083 (Version 1)
Quarter: 2022Q1

REPORT INFORMATION
  Report Type: Spontaneous
  Country: BR (occurrence: BR)
  Receive Date: 20220322
  Receipt Date: 20220322
  Transmission Date: 20220423
  Serious: Yes (Death, Other)
  Sender: FDA-Public Use
  Company Number: BR-ASTELLAS-2022US010649

PATIENT
  Age: 56 Year
  Sex: Male

DRUGS (1)
  1. XOSPATA [Suspect]
     Active Substance: GILTERITINIB
     Indication: Acute myeloid leukaemia
     Route: 048
     Dates: start: 202109, end: 202110

REACTIONS (3)
  - Blast cell count increased [Unknown]
  - Malignant neoplasm progression [Fatal]
  - Leukaemia cutis [Unknown]

NARRATIVE: CASE EVENT DATE: 20211201
